FAERS Safety Report 19134672 (Version 2)
Quarter: 2025Q2

REPORT INFORMATION
  Report Type: Spontaneous
  Country: US (occurrence: US)
  Receive Date: 20210414
  Receipt Date: 20250512
  Transmission Date: 20250716
  Serious: Yes (Other)
  Sender: ROCHE
  Company Number: US-ROCHE-2804094

PATIENT
  Sex: Male

DRUGS (2)
  1. EVRYSDI [Interacting]
     Active Substance: RISDIPLAM
     Indication: Spinal muscular atrophy
     Route: 048
  2. MODERNA COVID-19 VACCINE [Interacting]
     Active Substance: ELASOMERAN
     Indication: Product used for unknown indication
     Route: 030

REACTIONS (2)
  - Vaccine interaction [Not Recovered/Not Resolved]
  - Loss of therapeutic response [Not Recovered/Not Resolved]
